FAERS Safety Report 4434684-9 (Version None)
Quarter: 2004Q3

REPORT INFORMATION
  Report Type: 
  Country: None (occurrence: None)
  Receive Date: 20040730
  Receipt Date: 19990419
  Transmission Date: 20050211
  Serious: Yes (Other)
  Sender: FDA-Public Use
  Company Number: 1999-04-0828

PATIENT
  Age: 38 Year
  Sex: Male

DRUGS (2)
  1. INTRON A [Suspect]
     Indication: HEPATITIS
     Dosage: 3 MU TIW
     Dates: end: 19990412
  2. REBETOL [Suspect]
     Indication: HEPATITIS
     Dosage: 1200 MG/DAY
     Dates: end: 19990412

REACTIONS (1)
  - RETINAL EXUDATES [None]
